FAERS Safety Report 10375865 (Version 2)
Quarter: 2014Q3

REPORT INFORMATION
  Report Type: Report from Study
  Country: US (occurrence: US)
  Receive Date: 20140811
  Receipt Date: 20140819
  Transmission Date: 20150326
  Serious: Yes (Hospitalization)
  Sender: FDA-Public Use
  Company Number: US-ACTELION-A-US2014-103206

PATIENT
  Age: 48 Year
  Sex: Male

DRUGS (3)
  1. RIOCIGUAT [Concomitant]
     Active Substance: RIOCIGUAT
  2. TRACLEER [Suspect]
     Active Substance: BOSENTAN\BOSENTAN MONOHYDRATE
     Indication: PULMONARY EMBOLISM
     Dosage: 125 MG, BID
     Route: 048
  3. XARELTO [Concomitant]
     Active Substance: RIVAROXABAN

REACTIONS (4)
  - Blood magnesium decreased [Unknown]
  - Blood potassium decreased [Unknown]
  - Pulmonary arterial hypertension [Unknown]
  - Upper limb fracture [Unknown]

NARRATIVE: CASE EVENT DATE: 20140801
